FAERS Safety Report 17552872 (Version 1)
Quarter: 2020Q1

REPORT INFORMATION
  Report Type: Spontaneous
  Country: BR (occurrence: BR)
  Receive Date: 20200318
  Receipt Date: 20200318
  Transmission Date: 20200409
  Serious: Yes (Other)
  Sender: FDA-Public Use
  Company Number: BR-ALKEM LABORATORIES LIMITED-BR-ALKEM-2019-10815

PATIENT
  Age: 43 Year
  Sex: Female

DRUGS (1)
  1. DEFERASIROX. [Suspect]
     Active Substance: DEFERASIROX
     Indication: IRON OVERLOAD
     Dosage: 20 MILLIGRAM/KILOGRAM, QD
     Route: 048
     Dates: start: 201401

REACTIONS (1)
  - Drug-induced liver injury [Unknown]
